FAERS Safety Report 7545127-0 (Version None)
Quarter: 2011Q2

REPORT INFORMATION
  Report Type: 
  Country: None (occurrence: None)
  Receive Date: 20110610
  Receipt Date: 20110610
  Transmission Date: 20111010
  Serious: Yes (Life-Threatening, Hospitalization, Other)
  Sender: FDA-Public Use
  Company Number: None

PATIENT
  Age: 67 Year
  Sex: Male
  Weight: 95.2554 kg

DRUGS (1)
  1. PRADAXA [Suspect]
     Indication: DRUG THERAPY CHANGED
     Dosage: 150MG 2 X DAY
     Dates: start: 20110422, end: 20110502

REACTIONS (5)
  - APPARENT DEATH [None]
  - DYSPNOEA [None]
  - SMALL INTESTINAL HAEMORRHAGE [None]
  - DIZZINESS [None]
  - MELAENA [None]
